FAERS Safety Report 13289805 (Version 1)
Quarter: 2017Q1

REPORT INFORMATION
  Report Type: Spontaneous
  Country: US (occurrence: US)
  Receive Date: 20170302
  Receipt Date: 20170302
  Transmission Date: 20170428
  Serious: Yes (Other)
  Sender: FDA-Public Use
  Company Number: US-DEPOMED, INC.-US-2016DEP011663

PATIENT

DRUGS (1)
  1. GRALISE [Suspect]
     Active Substance: GABAPENTIN
     Indication: PRODUCT USED FOR UNKNOWN INDICATION
     Dosage: 1800 MG, QD WITH EVENING MEAL
     Route: 048
     Dates: start: 20160502, end: 20160803

REACTIONS (4)
  - Depression [Unknown]
  - Disturbance in attention [Unknown]
  - Somnolence [Unknown]
  - Anger [Unknown]

NARRATIVE: CASE EVENT DATE: 20160803
